FAERS Safety Report 6161775-7 (Version None)
Quarter: 2009Q2

REPORT INFORMATION
  Report Type: 
  Country: None (occurrence: None)
  Receive Date: 20090421
  Receipt Date: 20090407
  Transmission Date: 20091009
  Serious: Yes (Other)
  Sender: FDA-Public Use
  Company Number: JP-ROCHE-625196

PATIENT
  Sex: Female
  Weight: 40 kg

DRUGS (9)
  1. PEGASYS [Suspect]
     Indication: HEPATITIS C
     Route: 058
     Dates: start: 20090119, end: 20090224
  2. PEGASYS [Suspect]
     Route: 058
     Dates: start: 20090309
  3. COPEGUS [Suspect]
     Indication: HEPATITIS C
     Route: 048
     Dates: start: 20090119, end: 20090224
  4. CONIEL [Concomitant]
     Route: 048
     Dates: start: 20050725
  5. ROHYPNOL [Concomitant]
     Route: 048
     Dates: start: 20050725
  6. SENNOSIDE [Concomitant]
     Route: 048
     Dates: start: 20050725
  7. OMEPRAZOLE [Concomitant]
     Route: 048
     Dates: start: 20061211
  8. URSO 250 [Concomitant]
     Route: 048
     Dates: start: 20070326
  9. BONALON [Concomitant]
     Route: 048
     Dates: start: 20080128

REACTIONS (1)
  - HAEMOPTYSIS [None]
